FAERS Safety Report 16649551 (Version 1)
Quarter: 2019Q3

REPORT INFORMATION
  Report Type: Report from Study
  Country: CA (occurrence: CA)
  Receive Date: 20190730
  Receipt Date: 20190730
  Transmission Date: 20191004
  Serious: Yes (Other)
  Sender: FDA-Public Use
  Company Number: CA-HLSUS-2019-CA-000774

PATIENT
  Sex: Female

DRUGS (1)
  1. CLOZARIL [Suspect]
     Active Substance: CLOZAPINE
     Route: 048
     Dates: start: 20190618, end: 20190716

REACTIONS (5)
  - C-reactive protein increased [Unknown]
  - Pericardial effusion [Unknown]
  - Electrocardiogram T wave inversion [Unknown]
  - Troponin increased [Unknown]
  - Myocarditis [Unknown]
